FAERS Safety Report 14305185 (Version 1)
Quarter: 2017Q4

REPORT INFORMATION
  Report Type: Spontaneous
  Country: US (occurrence: US)
  Receive Date: 20171219
  Receipt Date: 20171219
  Transmission Date: 20180321
  Serious: Yes (Death, Other)
  Sender: FDA-Public Use
  Company Number: US-OTSUKA-DJ201401516

PATIENT
  Age: 81 Year
  Sex: Male

DRUGS (1)
  1. ABILIFY [Suspect]
     Active Substance: ARIPIPRAZOLE
     Indication: DEMENTIA
     Dosage: 10 MG, UNK
     Route: 065
     Dates: start: 201310

REACTIONS (5)
  - Sepsis [Fatal]
  - Off label use [Fatal]
  - Death [Fatal]
  - Cholelithiasis [Fatal]
  - Cholecystitis infective [Fatal]
